FAERS Safety Report 6666053-5 (Version None)
Quarter: 2010Q1

REPORT INFORMATION
  Report Type: 
  Country: None (occurrence: None)
  Receive Date: 20100330
  Receipt Date: 20100318
  Transmission Date: 20100710
  Serious: Yes (Other)
  Sender: FDA-Public Use
  Company Number: 2010-0595

PATIENT
  Age: 50 Year
  Sex: Female
  Weight: 54.9 kg

DRUGS (2)
  1. DYSPORT [Suspect]
     Indication: SKIN WRINKLING
     Dosage: 190 UNITS (190 UNITS,SINGLE CYCLE),PARENTERAL
     Route: 051
     Dates: start: 20100120, end: 20100120
  2. MULTI-VITAMINS [Concomitant]

REACTIONS (1)
  - SINUSITIS [None]
